FAERS Safety Report 18103816 (Version 1)
Quarter: 2020Q3

REPORT INFORMATION
  Report Type: Spontaneous
  Country: US (occurrence: US)
  Receive Date: 20200731
  Receipt Date: 20200731
  Transmission Date: 20201103
  Serious: Yes (Hospitalization)
  Sender: FDA-Public Use
  Company Number: None

PATIENT
  Sex: Male

DRUGS (1)
  1. LONSURF [Suspect]
     Active Substance: TIPIRACIL HYDROCHLORIDE\TRIFLURIDINE
     Indication: RECTAL CANCER
     Dosage: ?          OTHER DOSE:15?6.14MG;OTHER FREQUENCY:EVERY 28 DAYS;?
     Route: 048
     Dates: start: 20190709, end: 202007

REACTIONS (3)
  - Urinary tract disorder [None]
  - Drug ineffective [None]
  - Bladder disorder [None]
